FAERS Safety Report 8213955-4 (Version None)
Quarter: 2012Q1

REPORT INFORMATION
  Report Type: 
  Country: None (occurrence: None)
  Receive Date: 20120316
  Receipt Date: 20120313
  Transmission Date: 20120608
  Serious: No
  Sender: FDA-Public Use
  Company Number: US-PFIZER INC-2011294613

PATIENT
  Sex: Male
  Weight: 72.562 kg

DRUGS (2)
  1. SUTENT [Suspect]
     Indication: LUNG OPERATION
     Dosage: 50 MG, 1X/DAY
     Route: 048
     Dates: start: 20111121
  2. SUTENT [Suspect]
     Indication: LUNG NEOPLASM
     Dosage: 50 MG, 1X/DAY
     Dates: start: 20111121

REACTIONS (2)
  - MUSCULOSKELETAL PAIN [None]
  - ENZYME ABNORMALITY [None]
